FAERS Safety Report 14915663 (Version 1)
Quarter: 2018Q2

REPORT INFORMATION
  Report Type: Spontaneous
  Country: US (occurrence: US)
  Receive Date: 20180518
  Receipt Date: 20180518
  Transmission Date: 20180711
  Serious: Yes (Other)
  Sender: FDA-Public Use
  Company Number: US-SHIRE-US201817917

PATIENT
  Age: 16 Year
  Sex: Male

DRUGS (2)
  1. GAMMAGARD LIQUID [Suspect]
     Active Substance: HUMAN IMMUNOGLOBULIN G
     Indication: CYTOPENIA
     Dosage: 1 GM/KG, 1X/DAY:QD
     Route: 042
  2. RITUXIMAB. [Concomitant]
     Active Substance: RITUXIMAB
     Indication: CYTOPENIA

REACTIONS (2)
  - Pancytopenia [Recovered/Resolved]
  - Drug ineffective [Unknown]
